FAERS Safety Report 14158518 (Version 2)
Quarter: 2017Q4

REPORT INFORMATION
  Report Type: Spontaneous
  Country: US (occurrence: US)
  Receive Date: 20171103
  Receipt Date: 20171231
  Transmission Date: 20180321
  Serious: No
  Sender: FDA-Public Use
  Company Number: US-ASTRAZENECA-2017SF07975

PATIENT
  Sex: Female

DRUGS (1)
  1. SYMBICORT [Suspect]
     Active Substance: BUDESONIDE\FORMOTEROL FUMARATE DIHYDRATE
     Indication: ASTHMA
     Dosage: 160/4.5MCG 120-DOSE INHALER, TWO PUFFS TWICE DAILY
     Route: 055
     Dates: start: 201707, end: 201707

REACTIONS (3)
  - Product quality issue [Not Recovered/Not Resolved]
  - Product taste abnormal [Unknown]
  - Dysphonia [Not Recovered/Not Resolved]
